FAERS Safety Report 16911283 (Version 1)
Quarter: 2019Q4

REPORT INFORMATION
  Report Type: Spontaneous
  Country: FR (occurrence: FR)
  Receive Date: 20191013
  Receipt Date: 20191013
  Transmission Date: 20200122
  Serious: Yes (Hospitalization, Other)
  Sender: FDA-Public Use
  Company Number: FR-BRISTOL-MYERS SQUIBB COMPANY-BMS-2019-095795

PATIENT
  Age: 54 Year
  Sex: Female

DRUGS (1)
  1. OPDIVO [Suspect]
     Active Substance: NIVOLUMAB
     Indication: NASOPHARYNGEAL CANCER STAGE 0
     Dosage: 1 DOSAGE FORM - 1 UNIT NOS PER TWO WEEKS
     Route: 042
     Dates: start: 20180807, end: 20180919

REACTIONS (4)
  - Motor dysfunction [Recovered/Resolved]
  - Toxic neuropathy [Recovered/Resolved]
  - Diplopia [Recovered/Resolved]
  - Muscular weakness [Recovered/Resolved]

NARRATIVE: CASE EVENT DATE: 20181003
